FAERS Safety Report 7774626-1 (Version None)
Quarter: 2011Q3

REPORT INFORMATION
  Report Type: 
  Country: None (occurrence: None)
  Receive Date: 20110923
  Receipt Date: 20110914
  Transmission Date: 20111222
  Serious: Yes (Other)
  Sender: FDA-Public Use
  Company Number: IT-CELGENEUS-083-21880-11091834

PATIENT
  Sex: Male

DRUGS (3)
  1. L-PAM [Suspect]
     Indication: MULTIPLE MYELOMA
     Route: 065
     Dates: start: 20090401
  2. PREDNISONE [Suspect]
     Indication: MULTIPLE MYELOMA
     Route: 065
     Dates: start: 20090401
  3. REVLIMID [Suspect]
     Indication: MULTIPLE MYELOMA
     Route: 048
     Dates: start: 20090401

REACTIONS (1)
  - COLON CANCER STAGE I [None]
